FAERS Safety Report 6941522-9 (Version None)
Quarter: 2010Q3

REPORT INFORMATION
  Report Type: 
  Country: None (occurrence: None)
  Receive Date: 20100817
  Receipt Date: 20100413
  Transmission Date: 20110219
  Serious: Yes (Hospitalization, Other)
  Sender: FDA-Public Use
  Company Number: 20108602

PATIENT

DRUGS (1)
  1. LIORESAL [Suspect]
     Indication: MUSCLE SPASTICITY
     Dosage: UNK MCG DAILY, INTRATHECAL

REACTIONS (4)
  - HOSPITALISATION [None]
  - HYPERTONIA [None]
  - MEDICAL DEVICE CHANGE [None]
  - MEDICAL DEVICE COMPLICATION [None]
